FAERS Safety Report 7756192-X (Version None)
Quarter: 2011Q3

REPORT INFORMATION
  Report Type: 
  Country: None (occurrence: None)
  Receive Date: 20110916
  Receipt Date: 20110913
  Transmission Date: 20111222
  Serious: No
  Sender: FDA-Public Use
  Company Number: US-ABBOTT-11P-163-0854672-00

PATIENT
  Sex: Male
  Weight: 88.53 kg

DRUGS (10)
  1. VYTORIN [Concomitant]
     Indication: BLOOD CHOLESTEROL INCREASED
  2. VASOTEC [Concomitant]
     Indication: CARDIAC DISORDER
  3. ACIPHEX [Concomitant]
     Indication: GASTRIC DISORDER
  4. ALLOPURINOL [Concomitant]
     Indication: RENAL DISORDER
  5. TRILIPIX [Suspect]
     Indication: BLOOD TRIGLYCERIDES INCREASED
     Dates: start: 20110801
  6. ASPIRIN [Concomitant]
     Indication: CARDIAC DISORDER
  7. XANAX [Concomitant]
     Indication: ANXIETY
  8. UNKNOWN NOSE SPRAY [Concomitant]
     Indication: PRODUCT USED FOR UNKNOWN INDICATION
  9. ELIGARD [Concomitant]
     Indication: BENIGN PROSTATIC HYPERPLASIA
  10. XALATAN [Concomitant]
     Indication: HYPERTENSION

REACTIONS (2)
  - NAUSEA [None]
  - FREQUENT BOWEL MOVEMENTS [None]
